FAERS Safety Report 5359625-1 (Version None)
Quarter: 2007Q2

REPORT INFORMATION
  Report Type: 
  Country: None (occurrence: None)
  Receive Date: 20070615
  Receipt Date: 20070601
  Transmission Date: 20071010
  Serious: Yes (Other)
  Sender: FDA-Public Use
  Company Number: US-SHR-US-2007-012270

PATIENT
  Age: 28 Year
  Sex: Female

DRUGS (5)
  1. BETASERON [Suspect]
     Dosage: 6 MIU, EVERY 2D
     Route: 058
     Dates: start: 20070307, end: 20070101
  2. BETASERON [Suspect]
     Dosage: 4 MIU, EVERY 2D
     Route: 058
     Dates: start: 20070101, end: 20070406
  3. TYLENOL [Concomitant]
     Indication: PREMEDICATION
     Dosage: 1000 MG, EVERY 2D
  4. IBUPROFEN [Concomitant]
     Indication: PREMEDICATION
     Dosage: 400 MG, EVERY 2D
  5. SYNTHROID [Concomitant]

REACTIONS (6)
  - ABDOMINAL PAIN [None]
  - CHROMATURIA [None]
  - HEPATIC ENZYME INCREASED [None]
  - HEPATIC NECROSIS [None]
  - HEPATOCELLULAR DAMAGE [None]
  - SENSATION OF PRESSURE [None]
